FAERS Safety Report 25832674 (Version 1)
Quarter: 2025Q3

REPORT INFORMATION
  Report Type: Spontaneous
  Country: US (occurrence: US)
  Receive Date: 20250922
  Receipt Date: 20250922
  Transmission Date: 20251021
  Serious: Yes (Other)
  Sender: AMGEN
  Company Number: US-AMGEN-USASP2025187554

PATIENT
  Age: 57 Year
  Sex: Male

DRUGS (4)
  1. PREDNISONE [Suspect]
     Active Substance: PREDNISONE
     Indication: Optic neuritis
     Route: 048
  2. PREDNISONE [Suspect]
     Active Substance: PREDNISONE
     Route: 048
  3. Immunoglobulin [Concomitant]
     Indication: Immunodeficiency common variable
     Route: 040
  4. Immunoglobulin [Concomitant]
     Route: 040

REACTIONS (2)
  - Optic neuritis [Unknown]
  - Off label use [Unknown]
